FAERS Safety Report 8609062-9 (Version None)
Quarter: 2012Q3

REPORT INFORMATION
  Report Type: 
  Country: None (occurrence: None)
  Receive Date: 20120821
  Receipt Date: 20120817
  Transmission Date: 20120928
  Serious: Yes (Death, Hospitalization)
  Sender: FDA-Public Use
  Company Number: US-JNJFOC-20120706416

PATIENT
  Age: 84 Year
  Sex: Male

DRUGS (12)
  1. RANEXA [Concomitant]
     Dates: end: 20120701
  2. LASIX [Concomitant]
     Dates: end: 20120701
  3. ASPIRIN [Concomitant]
     Dates: end: 20120701
  4. XARELTO [Suspect]
     Indication: CEREBROVASCULAR ACCIDENT PROPHYLAXIS
     Route: 048
     Dates: start: 20120101, end: 20120701
  5. ATROVENT [Concomitant]
     Dates: end: 20120701
  6. AMIODARONE HCL [Suspect]
     Indication: PRODUCT USED FOR UNKNOWN INDICATION
     Dates: start: 20120101, end: 20120701
  7. IMDUR [Concomitant]
     Dates: end: 20120701
  8. ZEBETA [Concomitant]
     Dates: end: 20120701
  9. XARELTO [Suspect]
     Indication: ATRIAL FIBRILLATION
     Route: 048
     Dates: start: 20120101, end: 20120701
  10. GLYBURIDE [Concomitant]
     Dates: end: 20120701
  11. LIPITOR [Concomitant]
     Dates: end: 20120701
  12. SINGULAIR [Concomitant]
     Dates: end: 20120701

REACTIONS (1)
  - HEPATIC FAILURE [None]
